FAERS Safety Report 11761040 (Version 3)
Quarter: 2015Q4

REPORT INFORMATION
  Report Type: Report from Study
  Country: CA (occurrence: CA)
  Receive Date: 20151120
  Receipt Date: 20151208
  Transmission Date: 20160304
  Serious: Yes (Other)
  Sender: FDA-Public Use
  Company Number: CA-ABBVIE-15K-028-1501186-00

PATIENT
  Age: 60 Year
  Sex: Female

DRUGS (1)
  1. HUMIRA [Suspect]
     Active Substance: ADALIMUMAB
     Indication: CROHN^S DISEASE
     Route: 058
     Dates: start: 20150429, end: 20151028

REACTIONS (10)
  - Sepsis [Recovering/Resolving]
  - Abdominal pain lower [Not Recovered/Not Resolved]
  - Frequent bowel movements [Not Recovered/Not Resolved]
  - Constipation [Recovered/Resolved]
  - Blood glucose increased [Not Recovered/Not Resolved]
  - Urinary tract infection [Recovered/Resolved]
  - White blood cell count increased [Recovering/Resolving]
  - Vulvovaginal mycotic infection [Recovered/Resolved]
  - Feeling abnormal [Recovering/Resolving]
  - Panic reaction [Unknown]

NARRATIVE: CASE EVENT DATE: 2015
